FAERS Safety Report 20937974 (Version 1)
Quarter: 2022Q2

REPORT INFORMATION
  Report Type: Spontaneous
  Country: US (occurrence: None)
  Receive Date: 20220608
  Receipt Date: 20220608
  Transmission Date: 20220721
  Serious: Yes (Hospitalization)
  Sender: FDA-Public Use
  Company Number: None

PATIENT
  Age: 67 Year
  Sex: Female
  Weight: 62.32 kg

DRUGS (10)
  1. SUNITINIB MALATE [Suspect]
     Active Substance: SUNITINIB MALATE
     Indication: Renal cancer
     Dosage: OTHER FREQUENCY : 14D ON 7D OFF;?
  2. VITAMINS [Concomitant]
     Active Substance: VITAMINS
  3. CHOLESTYRAMINE [Concomitant]
     Active Substance: CHOLESTYRAMINE
  4. FUROSEMIDE [Concomitant]
     Active Substance: FUROSEMIDE
  5. HYDROMORPHONE [Concomitant]
     Active Substance: HYDROMORPHONE
  6. IMODIUM AD [Concomitant]
     Active Substance: LOPERAMIDE HYDROCHLORIDE
  7. MESALAMINE [Concomitant]
     Active Substance: MESALAMINE
  8. VITAMINS [Concomitant]
     Active Substance: VITAMINS
  9. NALOXONE [Concomitant]
     Active Substance: NALOXONE
  10. NYSTATIN [Concomitant]
     Active Substance: NYSTATIN

REACTIONS (2)
  - Intestinal obstruction [None]
  - Therapy interrupted [None]
